FAERS Safety Report 14522727 (Version 2)
Quarter: 2018Q1

REPORT INFORMATION
  Report Type: Report from Study
  Country: None (occurrence: US)
  Receive Date: 20180212
  Receipt Date: 20180215
  Transmission Date: 20180509
  Serious: Yes (Death)
  Sender: FDA-Public Use
  Company Number: US-VIFOR (INTERNATIONAL) INC.-VIT-2018-01359

PATIENT
  Age: 64 Year
  Sex: Male

DRUGS (16)
  1. SENSIPAR [Concomitant]
     Active Substance: CINACALCET HYDROCHLORIDE
  2. RENVELA [Concomitant]
     Active Substance: SEVELAMER CARBONATE
  3. HUMALOG [Concomitant]
     Active Substance: INSULIN LISPRO
  4. LIPITOR [Concomitant]
     Active Substance: ATORVASTATIN CALCIUM
  5. SENOKOT [Concomitant]
     Active Substance: SENNOSIDES
  6. ASCORBIC ACID. [Concomitant]
     Active Substance: ASCORBIC ACID
  7. PLAVIX [Concomitant]
     Active Substance: CLOPIDOGREL BISULFATE
  8. MIRALAX [Concomitant]
     Active Substance: POLYETHYLENE GLYCOL 3350
  9. VELTASSA [Suspect]
     Active Substance: PATIROMER
     Indication: HYPERKALAEMIA
     Route: 048
     Dates: start: 20180118, end: 20180127
  10. BISACODYL. [Concomitant]
     Active Substance: BISACODYL
  11. PERCOCET [Concomitant]
     Active Substance: ACETAMINOPHEN\OXYCODONE HYDROCHLORIDE
  12. OXYCONTIN [Concomitant]
     Active Substance: OXYCODONE HYDROCHLORIDE
  13. COREG [Concomitant]
     Active Substance: CARVEDILOL
  14. GABAPENTIN. [Concomitant]
     Active Substance: GABAPENTIN
  15. FERROUS SULFATE. [Concomitant]
     Active Substance: FERROUS SULFATE
  16. LANTUS [Concomitant]
     Active Substance: INSULIN GLARGINE

REACTIONS (1)
  - Death [Fatal]

NARRATIVE: CASE EVENT DATE: 20180127
